FAERS Safety Report 21622525 (Version 2)
Quarter: 2022Q4

REPORT INFORMATION
  Report Type: Report from Study
  Country: CA (occurrence: CA)
  Receive Date: 20221121
  Receipt Date: 20221206
  Transmission Date: 20230113
  Serious: Yes (Other)
  Sender: FDA-Public Use
  Company Number: CA-GLAXOSMITHKLINE-CA2022171919

PATIENT

DRUGS (1)
  1. MEPOLIZUMAB [Suspect]
     Active Substance: MEPOLIZUMAB
     Indication: Asthma
     Dosage: 100 MG, Z: EVERY 4 WEEKS
     Route: 058
     Dates: start: 20200224

REACTIONS (3)
  - Diabetes mellitus [Not Recovered/Not Resolved]
  - Malaise [Not Recovered/Not Resolved]
  - Thirst [Not Recovered/Not Resolved]
